FAERS Safety Report 10424354 (Version 1)
Quarter: 2014Q3

REPORT INFORMATION
  Report Type: Spontaneous
  Country: US (occurrence: None)
  Receive Date: 20140722
  Receipt Date: 20140722
  Transmission Date: 20150326
  Serious: No
  Sender: FDA-Public Use
  Company Number: 163-10004-14044856

PATIENT
  Age: 56 Year
  Sex: Female
  Weight: 90.72 kg

DRUGS (7)
  1. SINGULAR (UNKNOWN) [Concomitant]
  2. OTEZLA [Suspect]
     Active Substance: APREMILAST
     Indication: PSORIATIC ARTHROPATHY
     Route: 048
     Dates: start: 20140401
  3. LEVEMIR (INSULIN DETEMIR) (UNKNOWN) [Concomitant]
  4. BENICAR HCT (BENICAR HCT) (UNKNOWN) [Concomitant]
  5. ASPIRIN (UNKNOWN) [Concomitant]
     Active Substance: ASPIRIN
  6. FLUOXETINE (FLUOXETINE) (UNKNOWN) [Concomitant]
  7. NEURONTIN (GABAPENTIN) (UNKNOWN) [Concomitant]

REACTIONS (7)
  - Oropharyngeal pain [None]
  - Dyspnoea [None]
  - Insomnia [None]
  - Headache [None]
  - Sinusitis [None]
  - Upper respiratory tract infection [None]
  - Drug dose omission [None]

NARRATIVE: CASE EVENT DATE: 20140418
